FAERS Safety Report 7938427-3 (Version None)
Quarter: 2011Q4

REPORT INFORMATION
  Report Type: 
  Country: None (occurrence: None)
  Receive Date: 20111123
  Receipt Date: 20111117
  Transmission Date: 20120403
  Serious: Yes (Hospitalization)
  Sender: FDA-Public Use
  Company Number: US-GILEAD-2011-0045919

PATIENT
  Sex: Female

DRUGS (3)
  1. LETAIRIS [Suspect]
     Indication: PULMONARY HYPERTENSION
     Dosage: 10 MG, UNK
     Route: 048
     Dates: start: 20100701
  2. LETAIRIS [Suspect]
     Indication: HIV TEST POSITIVE
  3. LETAIRIS [Suspect]
     Indication: VENTRICULAR SEPTAL DEFECT

REACTIONS (1)
  - CHEST PAIN [None]
